FAERS Safety Report 8213130-3 (Version None)
Quarter: 2012Q1

REPORT INFORMATION
  Report Type: 
  Country: None (occurrence: None)
  Receive Date: 20120315
  Receipt Date: 20120307
  Transmission Date: 20120608
  Serious: Yes (Other)
  Sender: FDA-Public Use
  Company Number: US-ABBOTT-12P-163-0913228-00

PATIENT
  Sex: Female

DRUGS (2)
  1. MULTI-VITAMINS [Concomitant]
     Indication: PRODUCT USED FOR UNKNOWN INDICATION
  2. HUMIRA [Suspect]
     Indication: RHEUMATOID ARTHRITIS
     Dates: start: 20100601, end: 20101001

REACTIONS (6)
  - UPPER RESPIRATORY TRACT INFECTION [None]
  - INFLUENZA [None]
  - SINUSITIS [None]
  - BACTERIAL INFECTION [None]
  - PREMATURE LABOUR [None]
  - BRONCHITIS [None]
